FAERS Safety Report 8389687 (Version 3)
Quarter: 2013Q2

REPORT INFORMATION
  Report Type: Spontaneous
  Country: US (occurrence: US)
  Receive Date: 20120203
  Receipt Date: 20130617
  Transmission Date: 20140414
  Serious: Yes (Hospitalization, Other)
  Sender: FDA-Public Use
  Company Number: US-ELI_LILLY_AND_COMPANY-US201109000384

PATIENT
  Age: 79 Year
  Sex: Female

DRUGS (13)
  1. FORTEO [Suspect]
     Indication: OSTEOPOROSIS
     Dosage: 20 UG, QD
     Route: 058
  2. FORTEO [Suspect]
     Dosage: 20 UG, QD
     Route: 058
  3. FORTEO [Suspect]
     Dosage: 20 UG, QD
     Route: 058
  4. FORTEO [Suspect]
     Dosage: 20 UG, QD
     Route: 058
  5. IBUPROFEN [Concomitant]
     Indication: ULCER
     Dosage: UNK, QD
  6. IBUPROFEN [Concomitant]
     Dosage: UNK, QOD
  7. B12 [Concomitant]
  8. POTASSIUM [Concomitant]
  9. GABAPENTIN [Concomitant]
  10. TRAZODONE [Concomitant]
  11. ROPINIROLE [Concomitant]
  12. CALCIUM [Concomitant]
  13. FLAXSEED OIL [Concomitant]

REACTIONS (7)
  - Loss of consciousness [Unknown]
  - Cognitive disorder [Unknown]
  - Electrolyte imbalance [Unknown]
  - General physical health deterioration [Unknown]
  - Memory impairment [Unknown]
  - Asthenia [Not Recovered/Not Resolved]
  - Nausea [Unknown]
